FAERS Safety Report 5420633-3 (Version None)
Quarter: 2007Q3

REPORT INFORMATION
  Report Type: 
  Country: None (occurrence: None)
  Receive Date: 20070816
  Receipt Date: 20070806
  Transmission Date: 20080115
  Serious: Yes (Other)
  Sender: FDA-Public Use
  Company Number: TPA2007A01418

PATIENT
  Age: 28 Year
  Sex: Female
  Weight: 142.8831 kg

DRUGS (6)
  1. PIOGLITAZONE HCL [Suspect]
     Indication: GLUCOSE TOLERANCE IMPAIRED
     Dosage: 1 IN 1 D, PER ORAL
     Route: 048
     Dates: start: 20050629
  2. ZOLOFT [Concomitant]
  3. TOPROL XL (METOPROLOL SUCCINATE) (TABLETS) [Concomitant]
  4. HYDROCHLOROTHIAZIDE [Concomitant]
  5. BACLOFEN [Concomitant]
  6. FERROUS SULFATE TAB [Concomitant]

REACTIONS (2)
  - ACCIDENT [None]
  - ANKLE FRACTURE [None]
